FAERS Safety Report 16474787 (Version 1)
Quarter: 2019Q2

REPORT INFORMATION
  Report Type: Spontaneous
  Country: DE (occurrence: DE)
  Receive Date: 20190625
  Receipt Date: 20190625
  Transmission Date: 20190711
  Serious: Yes (Hospitalization, Other)
  Sender: FDA-Public Use
  Company Number: DE-SA-2019SA169928

PATIENT
  Sex: Male

DRUGS (2)
  1. KEVZARA [Suspect]
     Active Substance: SARILUMAB
     Dosage: UNK
  2. TOCILIZUMAB. [Concomitant]
     Active Substance: TOCILIZUMAB

REACTIONS (2)
  - Dyspnoea [Unknown]
  - Neutropenia [Unknown]
